FAERS Safety Report 13891261 (Version 3)
Quarter: 2017Q3

REPORT INFORMATION
  Report Type: Spontaneous
  Country: US (occurrence: US)
  Receive Date: 20170822
  Receipt Date: 20170915
  Transmission Date: 20171127
  Serious: Yes (Life-Threatening, Hospitalization, Other)
  Sender: FDA-Public Use
  Company Number: US-PFIZER INC-2017359674

PATIENT
  Age: 57 Year
  Sex: Female

DRUGS (9)
  1. MIDODRINE [Concomitant]
     Active Substance: MIDODRINE
     Indication: HYPOTENSION
     Dosage: UNK
  2. LINEZOLID. [Suspect]
     Active Substance: LINEZOLID
     Indication: URINARY TRACT INFECTION
     Dosage: 600 MG, 2X/DAY
  3. LACTULOSE. [Concomitant]
     Active Substance: LACTULOSE
     Indication: HEPATIC ENCEPHALOPATHY
     Dosage: UNK
  4. IPRATROPIUM BROMIDE. [Concomitant]
     Active Substance: IPRATROPIUM BROMIDE
     Indication: ASTHMA
     Dosage: UNK, INHALER
     Route: 045
  5. TRAMADOL. [Suspect]
     Active Substance: TRAMADOL
     Indication: PAIN
     Dosage: UNK
  6. CITALOPRAM [Interacting]
     Active Substance: CITALOPRAM HYDROBROMIDE
     Indication: DEPRESSION
     Dosage: UNK
  7. RIFAXIMIN [Concomitant]
     Active Substance: RIFAXIMIN
     Indication: HEPATIC ENCEPHALOPATHY
     Dosage: UNK
  8. ALBUTAMOL [Concomitant]
     Indication: ASTHMA
     Dosage: UNK, INHALER
     Route: 045
  9. FLUCONAZOLE. [Suspect]
     Active Substance: FLUCONAZOLE
     Indication: URINARY TRACT INFECTION
     Dosage: 200 MG, DAILY

REACTIONS (2)
  - Serotonin syndrome [Recovered/Resolved]
  - Drug interaction [Recovered/Resolved]
